FAERS Safety Report 5943581-9 (Version None)
Quarter: 2008Q4

REPORT INFORMATION
  Report Type: 
  Country: None (occurrence: None)
  Receive Date: 20081106
  Receipt Date: 20080502
  Transmission Date: 20090506
  Serious: No
  Sender: FDA-Public Use
  Company Number: A0727056A

PATIENT
  Age: 65 Year
  Sex: Female
  Weight: 75 kg

DRUGS (4)
  1. AMOXICILLIN [Suspect]
     Dosage: 2000MGD PER DAY
     Route: 048
     Dates: start: 20070501
  2. BIAXIN [Suspect]
     Dosage: 1000MGD PER DAY
     Route: 048
     Dates: start: 20070501
  3. LANSOPRAZOLE [Suspect]
     Dosage: 30MG UNKNOWN
     Route: 048
  4. UNKNOWN [Concomitant]

REACTIONS (5)
  - BURNING SENSATION [None]
  - DRY MOUTH [None]
  - DYSGEUSIA [None]
  - OROPHARYNGEAL BLISTERING [None]
  - TONGUE DISORDER [None]
